FAERS Safety Report 10060763 (Version 1)
Quarter: 2014Q2

REPORT INFORMATION
  Report Type: Report from Study
  Country: MX (occurrence: MX)
  Receive Date: 20140404
  Receipt Date: 20140404
  Transmission Date: 20141212
  Serious: Yes (Death, Other)
  Sender: FDA-Public Use
  Company Number: PHHY2014MX038302

PATIENT
  Age: 63 Year
  Sex: Male
  Weight: 63 kg

DRUGS (5)
  1. EXFORGE HCT [Suspect]
     Indication: HYPERTENSION
     Dosage: 2 DF (160/5/12.5 MG), DAILY
     Route: 048
     Dates: start: 201009
  2. GALVUS MET [Suspect]
     Indication: BLOOD GLUCOSE ABNORMAL
     Dosage: UNK UKN, UNK
     Route: 048
  3. LOSARTAN [Suspect]
     Dosage: UNK UKN, UNK
     Dates: start: 2010
  4. NIFEDIPINE [Suspect]
     Dosage: UNK UKN, UNK
     Dates: start: 2010
  5. ROSIGLITAZONE [Suspect]
     Indication: BLOOD GLUCOSE ABNORMAL
     Dosage: 4 MG, QD (BREAKFAST)
     Route: 048

REACTIONS (3)
  - Myocardial infarction [Fatal]
  - Gangrene [Unknown]
  - Renal disorder [Not Recovered/Not Resolved]
